FAERS Safety Report 6129696 (Version 27)
Quarter: 2014Q3

REPORT INFORMATION
  Report Type: Spontaneous
  Country: US (occurrence: US)
  Receive Date: 20060918
  Receipt Date: 20140723
  Transmission Date: 20150326
  Serious: Yes (Hospitalization, Other)
  Sender: FDA-Public Use
  Company Number: PHEH2006US11384

PATIENT
  Age: 71 Year
  Sex: Male

DRUGS (41)
  1. CARBOPLATIN. [Concomitant]
     Active Substance: CARBOPLATIN
     Dosage: 50 MG, 13 UNITS
     Route: 042
  2. PEGFILGRASTIM [Concomitant]
     Active Substance: PEGFILGRASTIM
  3. PACLITAXEL. [Concomitant]
     Active Substance: PACLITAXEL
     Dosage: 30 MG, 12 UNITS
  4. ADVIL [Concomitant]
     Active Substance: IBUPROFEN
  5. PERCOCET [Concomitant]
     Active Substance: ACETAMINOPHEN\OXYCODONE HYDROCHLORIDE
  6. NEULASTA [Concomitant]
     Active Substance: PEGFILGRASTIM
  7. COMBIVENT [Concomitant]
     Active Substance: ALBUTEROL SULFATE\IPRATROPIUM BROMIDE
     Route: 055
  8. AREDIA [Suspect]
     Active Substance: PAMIDRONATE DISODIUM
     Indication: LUNG NEOPLASM MALIGNANT
     Dosage: 30 MG, / 3 UNITS
     Route: 042
     Dates: start: 200107
  9. ZOMETA [Suspect]
     Active Substance: ZOLEDRONIC ACID
     Indication: METASTASES TO BONE
     Dosage: 4 MG
     Route: 065
  10. NORMAL SALINE [Concomitant]
     Active Substance: SODIUM CHLORIDE
     Dosage: 250 ML, UNK
     Route: 042
  11. METFORMIN [Concomitant]
     Active Substance: METFORMIN HYDROCHLORIDE
  12. LEVOTHYROXINE [Concomitant]
     Active Substance: LEVOTHYROXINE
  13. LIPITOR [Concomitant]
     Active Substance: ATORVASTATIN CALCIUM
     Dosage: 20 UKN, QD
  14. CIMETIDINE [Concomitant]
     Active Substance: CIMETIDINE
     Dosage: 300 MG, UNK
     Route: 042
  15. DEXAMETHASONE. [Concomitant]
     Active Substance: DEXAMETHASONE
     Dosage: 4 MG, 5 UNITS
     Route: 048
  16. GRANISETRON HYDROCHLORIDE. [Concomitant]
     Active Substance: GRANISETRON HYDROCHLORIDE
     Dosage: 1 MG, 2 UNITS
  17. TAXOL [Concomitant]
     Active Substance: PACLITAXEL
     Dates: start: 200107, end: 200109
  18. ZOCOR [Concomitant]
     Active Substance: SIMVASTATIN
  19. MVI [Concomitant]
     Active Substance: VITAMINS
  20. TAXOTERE [Concomitant]
     Active Substance: DOCETAXEL
  21. MULTIVITAMINS [Concomitant]
     Active Substance: VITAMINS
  22. GLUCOTROL [Concomitant]
     Active Substance: GLIPIZIDE
  23. ANTINEOPLASTIC AGENTS [Concomitant]
     Active Substance: UNSPECIFIED INGREDIENT
     Dates: start: 2004
  24. DIPHENHYDRAMINE [Concomitant]
     Active Substance: DIPHENHYDRAMINE
     Dosage: 50 MG, UNK
     Route: 042
  25. LISINOPRIL. [Concomitant]
     Active Substance: LISINOPRIL
     Dosage: 5 UKN, QD
  26. ALPRAZOLAM. [Concomitant]
     Active Substance: ALPRAZOLAM
     Dosage: 0.25 MG ONE HALF TABLET B.I.D.
  27. ASMANEX [Concomitant]
     Active Substance: MOMETASONE FUROATE
  28. LUPRON [Concomitant]
     Active Substance: LEUPROLIDE ACETATE
  29. GLUCOPHAGE [Concomitant]
     Active Substance: METFORMIN HYDROCHLORIDE
  30. RADIATION THERAPY [Concomitant]
     Active Substance: RADIATION THERAPY
     Dates: start: 2004
  31. GLIPIZIDE. [Concomitant]
     Active Substance: GLIPIZIDE
     Dosage: 10 UKN, QD
  32. NEXIUM [Concomitant]
     Active Substance: ESOMEPRAZOLE MAGNESIUM
  33. LOVASTATIN. [Concomitant]
     Active Substance: LOVASTATIN
     Route: 048
  34. FLONASE [Concomitant]
     Active Substance: FLUTICASONE PROPIONATE
  35. TRI-CHLOR [Concomitant]
     Active Substance: TRICHLOROACETIC ACID
  36. TEVETEN HCT [Concomitant]
     Active Substance: EPROSARTAN MESYLATE\HYDROCHLOROTHIAZIDE
     Dosage: 600/12.5 MG ONE DAILY
  37. ZYMAR [Concomitant]
     Active Substance: GATIFLOXACIN
  38. ASA [Concomitant]
     Active Substance: ASPIRIN
     Dosage: 160 UKN, QD
  39. SIMVASTATIN. [Concomitant]
     Active Substance: SIMVASTATIN
     Route: 048
  40. ONDANSETRON [Concomitant]
     Active Substance: ONDANSETRON
     Dosage: 24 MG, PRN
     Route: 048
  41. ADVAIR HFA [Concomitant]
     Active Substance: FLUTICASONE PROPIONATE\SALMETEROL XINAFOATE

REACTIONS (107)
  - Pain in extremity [Unknown]
  - Tooth loss [Unknown]
  - Pain [Recovering/Resolving]
  - Pruritus [Unknown]
  - Skin discolouration [Unknown]
  - Rash papular [Unknown]
  - Dyspepsia [Unknown]
  - Sinusitis [Unknown]
  - Malignant neoplasm progression [Unknown]
  - Mitral valve incompetence [Unknown]
  - Hyperkeratosis [Unknown]
  - Nail disorder [Unknown]
  - Hypermetabolism [Unknown]
  - Anxiety [Unknown]
  - Bone fragmentation [Unknown]
  - Localised infection [Unknown]
  - Paronychia [Recovering/Resolving]
  - Bone lesion [Unknown]
  - Paraesthesia oral [Unknown]
  - Skin disorder [Unknown]
  - Scar [Unknown]
  - Osteolysis [Unknown]
  - Polyneuropathy [Unknown]
  - Hypermetropia [Unknown]
  - Lipoma [Unknown]
  - Hypophagia [Unknown]
  - Injury [Unknown]
  - Tooth infection [Unknown]
  - Skin atrophy [Unknown]
  - Hypoxia [Unknown]
  - Fatigue [Unknown]
  - Azotaemia [Unknown]
  - Anaemia [Unknown]
  - Peripheral swelling [Unknown]
  - Gynaecomastia [Unknown]
  - Upper respiratory tract infection [Recovered/Resolved]
  - Bone cancer [Unknown]
  - Hypercholesterolaemia [Unknown]
  - Life expectancy shortened [Unknown]
  - Metastatic neoplasm [Unknown]
  - Lacrimation increased [Unknown]
  - Tricuspid valve incompetence [Unknown]
  - Nail ridging [Unknown]
  - Foot deformity [Unknown]
  - Osteonecrosis of jaw [Unknown]
  - Neoplasm [Unknown]
  - Peripheral vascular disorder [Unknown]
  - Skin ulcer [Recovered/Resolved]
  - Age-related macular degeneration [Unknown]
  - Pneumonia [Unknown]
  - Proteinuria [Unknown]
  - Rhinorrhoea [Unknown]
  - Second primary malignancy [Unknown]
  - Rash pruritic [Unknown]
  - Gait disturbance [Unknown]
  - Rotator cuff syndrome [Unknown]
  - Vascular calcification [Unknown]
  - Pulmonary valve incompetence [Unknown]
  - Urinary tract infection [Recovered/Resolved]
  - Nail discolouration [Unknown]
  - Decreased interest [Unknown]
  - Recurrent cancer [Unknown]
  - Dyspnoea [Unknown]
  - Nail hypertrophy [Unknown]
  - Mucosal inflammation [Unknown]
  - Decreased appetite [Unknown]
  - Nasal dryness [Unknown]
  - Dermatitis contact [Unknown]
  - Deep vein thrombosis [Unknown]
  - Astigmatism [Unknown]
  - Nausea [Unknown]
  - Fungal infection [Unknown]
  - Pollakiuria [Unknown]
  - Nocturia [Unknown]
  - Hypoaesthesia [Unknown]
  - Loose tooth [Not Recovered/Not Resolved]
  - Emotional distress [Unknown]
  - Diabetes mellitus inadequate control [Unknown]
  - Neuropathy peripheral [Unknown]
  - Eschar [Recovering/Resolving]
  - Hypothyroidism [Unknown]
  - Bladder cancer [Unknown]
  - Facet joint syndrome [Unknown]
  - Renal cell carcinoma [Unknown]
  - Presbyopia [Unknown]
  - Musculoskeletal pain [Unknown]
  - Abdominal pain [Unknown]
  - Nephrolithiasis [Unknown]
  - Osteoarthritis [Unknown]
  - Lung abscess [Unknown]
  - Deformity [Unknown]
  - General physical health deterioration [Unknown]
  - Areflexia [Unknown]
  - Oedema [Unknown]
  - Dental fistula [Unknown]
  - Gallbladder polyp [Unknown]
  - Erythema [Unknown]
  - Back pain [Unknown]
  - Metastases to bone [Unknown]
  - Cerebral atrophy [Unknown]
  - Haematuria [Unknown]
  - Emphysema [Unknown]
  - Soft tissue mass [Unknown]
  - Lung cancer metastatic [Unknown]
  - Skin irritation [Unknown]
  - Large intestine polyp [Unknown]
  - Arthralgia [Unknown]

NARRATIVE: CASE EVENT DATE: 2001
